FAERS Safety Report 6657812-3 (Version None)
Quarter: 2010Q1

REPORT INFORMATION
  Report Type: 
  Country: None (occurrence: None)
  Receive Date: 20100330
  Receipt Date: 20100317
  Transmission Date: 20100710
  Serious: Yes (Hospitalization, Other)
  Sender: FDA-Public Use
  Company Number: US-ELI_LILLY_AND_COMPANY-US201003005724

PATIENT
  Sex: Male

DRUGS (2)
  1. STRATTERA [Suspect]
     Indication: ATTENTION DEFICIT/HYPERACTIVITY DISORDER
     Dates: start: 20100101
  2. SYMBYAX [Suspect]
     Indication: BIPOLAR DISORDER
     Dosage: 1 D/F, UNK
     Dates: start: 20090101

REACTIONS (2)
  - CONVULSION [None]
  - UPPER LIMB FRACTURE [None]
